FAERS Safety Report 5259678-5 (Version None)
Quarter: 2007Q1

REPORT INFORMATION
  Report Type: 
  Country: None (occurrence: None)
  Receive Date: 20070309
  Receipt Date: 20070226
  Transmission Date: 20070707
  Serious: Yes (Other)
  Sender: FDA-Public Use
  Company Number: HQWYE426102MAR07

PATIENT
  Age: 76 Year
  Sex: Female

DRUGS (1)
  1. TIGECYCLINE [Suspect]
     Indication: ENTEROCOCCAL INFECTION
     Dosage: 100 MG LOADING DOSE FOLLOWED BY 50 MG EVERY 12 H
     Route: 042

REACTIONS (4)
  - ACINETOBACTER BACTERAEMIA [None]
  - HYPOTHERMIA [None]
  - LEUKOCYTOSIS [None]
  - PATHOGEN RESISTANCE [None]
